FAERS Safety Report 4416083-9 (Version None)
Quarter: 2004Q3

REPORT INFORMATION
  Report Type: 
  Country: None (occurrence: None)
  Receive Date: 20040730
  Receipt Date: 20040719
  Transmission Date: 20050211
  Serious: Yes (Other)
  Sender: FDA-Public Use
  Company Number: 2004048791

PATIENT
  Age: 62 Year
  Sex: Male
  Weight: 72.5755 kg

DRUGS (3)
  1. VIAGRA [Suspect]
     Indication: ERECTILE DYSFUNCTION
     Dosage: 50 MG (50 MG, AS NEEDED), ORAL
     Route: 048
  2. VALSARTAN (VALSARTAN) [Concomitant]
  3. IBUPROFEN [Concomitant]

REACTIONS (4)
  - FLUSHING [None]
  - LIBIDO DECREASED [None]
  - PEYRONIE'S DISEASE [None]
  - SALIVARY GLAND NEOPLASM [None]
